FAERS Safety Report 6575238-8 (Version None)
Quarter: 2010Q1

REPORT INFORMATION
  Report Type: 
  Country: None (occurrence: None)
  Receive Date: 20100209
  Receipt Date: 20100201
  Transmission Date: 20100710
  Serious: Yes (Other)
  Sender: FDA-Public Use
  Company Number: GXKR2010GB01390

PATIENT
  Age: 33 Year
  Sex: Female
  Weight: 96 kg

DRUGS (2)
  1. RANITIDINE HCL [Suspect]
     Route: 048
  2. TEGRETOL [Interacting]
     Indication: EPILEPSY
     Route: 065

REACTIONS (2)
  - DRUG INTERACTION [None]
  - EPILEPSY [None]
